FAERS Safety Report 17404447 (Version 1)
Quarter: 2020Q1

REPORT INFORMATION
  Report Type: Spontaneous
  Country: DE (occurrence: DE)
  Receive Date: 20200211
  Receipt Date: 20200211
  Transmission Date: 20200409
  Serious: Yes (Other)
  Sender: FDA-Public Use
  Company Number: DE-B.I. PHARMACEUTICALS,INC./RIDGEFIELD-2020-BI-002985

PATIENT
  Age: 64 Year
  Sex: Female
  Weight: 55 kg

DRUGS (3)
  1. GILOTRIF [Suspect]
     Active Substance: AFATINIB
     Route: 065
     Dates: start: 20190730
  2. GILOTRIF [Suspect]
     Active Substance: AFATINIB
     Indication: NON-SMALL CELL LUNG CANCER
     Route: 065
     Dates: start: 20190524, end: 20190621
  3. GILOTRIF [Suspect]
     Active Substance: AFATINIB
     Indication: EGFR GENE MUTATION
     Route: 065
     Dates: start: 20190621, end: 20190730

REACTIONS (9)
  - Lung disorder [Unknown]
  - Necrosis [Unknown]
  - Hypoventilation [Unknown]
  - Pulmonary fibrosis [Unknown]
  - Diarrhoea [Recovered/Resolved]
  - Secretion discharge [Unknown]
  - Angiosclerosis [Unknown]
  - Skin fissures [Unknown]
  - Lung consolidation [Unknown]
